FAERS Safety Report 9571021 (Version 2)
Quarter: 2014Q1

REPORT INFORMATION
  Report Type: Spontaneous
  Country: US (occurrence: None)
  Receive Date: 20130927
  Receipt Date: 20140117
  Transmission Date: 20141002
  Serious: Yes (Hospitalization)
  Sender: FDA-Public Use
  Company Number: None

PATIENT
  Age: 49 Year
  Sex: Female
  Weight: 55 kg

DRUGS (2)
  1. KADCYLA [Suspect]
  2. KYPROLIS [Suspect]

REACTIONS (3)
  - Product label issue [None]
  - Drug dispensing error [None]
  - Circumstance or information capable of leading to medication error [None]
